FAERS Safety Report 5636816-3 (Version None)
Quarter: 2008Q1

REPORT INFORMATION
  Report Type: 
  Country: None (occurrence: None)
  Receive Date: 20080220
  Receipt Date: 20080220
  Transmission Date: 20080703
  Serious: Yes (Other)
  Sender: FDA-Public Use
  Company Number: None

PATIENT
  Age: 34 Year
  Sex: Female
  Weight: 69.8539 kg

DRUGS (1)
  1. CHANTIX [Suspect]
     Indication: SMOKING CESSATION THERAPY
     Dosage: ONE ONCE A DAY PO
     Route: 048
     Dates: start: 20070906, end: 20070914

REACTIONS (9)
  - AGITATION [None]
  - DIZZINESS [None]
  - HYPERVENTILATION [None]
  - HYPOAESTHESIA [None]
  - HYPOAESTHESIA FACIAL [None]
  - LOSS OF CONSCIOUSNESS [None]
  - SMOKER [None]
  - TINNITUS [None]
  - TREATMENT NONCOMPLIANCE [None]
